FAERS Safety Report 13388621 (Version 3)
Quarter: 2017Q2

REPORT INFORMATION
  Report Type: Spontaneous
  Country: CA (occurrence: CA)
  Receive Date: 20170330
  Receipt Date: 20170407
  Transmission Date: 20170830
  Serious: Yes (Death, Hospitalization)
  Sender: FDA-Public Use
  Company Number: CA-B.I. PHARMACEUTICALS,INC./RIDGEFIELD-2017-BI-018186

PATIENT
  Sex: Female

DRUGS (1)
  1. PRADAXA [Suspect]
     Active Substance: DABIGATRAN ETEXILATE MESYLATE
     Indication: PRODUCT USED FOR UNKNOWN INDICATION
     Route: 065
     Dates: start: 201703

REACTIONS (9)
  - Respiratory failure [Fatal]
  - Decubitus ulcer [Unknown]
  - Haemorrhage [Unknown]
  - International normalised ratio increased [Unknown]
  - Internal haemorrhage [Unknown]
  - Activated partial thromboplastin time abnormal [Unknown]
  - Melaena [Unknown]
  - Renal failure [Unknown]
  - Haemoglobin decreased [Unknown]

NARRATIVE: CASE EVENT DATE: 201703
